FAERS Safety Report 8190766-X (Version None)
Quarter: 2012Q1

REPORT INFORMATION
  Report Type: 
  Country: None (occurrence: None)
  Receive Date: 20120305
  Receipt Date: 20120222
  Transmission Date: 20120608
  Serious: Yes (Hospitalization)
  Sender: FDA-Public Use
  Company Number: 2012SP010145

PATIENT
  Age: 29 Year
  Sex: Female

DRUGS (1)
  1. NUVARING [Suspect]
     Indication: CONTRACEPTION
     Dosage: QM;VAG
     Route: 067
     Dates: start: 20050101, end: 20110801

REACTIONS (5)
  - ARTERIAL THROMBOSIS LIMB [None]
  - PAGET-SCHROETTER SYNDROME [None]
  - THERAPEUTIC RESPONSE DECREASED [None]
  - POST THROMBOTIC SYNDROME [None]
  - BREAST ENLARGEMENT [None]
